FAERS Safety Report 12190025 (Version 1)
Quarter: 2016Q1

REPORT INFORMATION
  Report Type: Spontaneous
  Country: RS (occurrence: RS)
  Receive Date: 20160318
  Receipt Date: 20160318
  Transmission Date: 20160526
  Serious: Yes (Other)
  Sender: FDA-Public Use
  Company Number: PHHY2016RS033585

PATIENT
  Age: 68 Year
  Sex: Female
  Weight: 70 kg

DRUGS (4)
  1. ZOMETA [Suspect]
     Active Substance: ZOLEDRONIC ACID
     Indication: METASTASES TO BONE
     Dosage: ONCE IN 4 WEEK
     Route: 042
     Dates: start: 201309, end: 201409
  2. ZOLEDRONIC ACID [Suspect]
     Active Substance: ZOLEDRONIC ACID
     Indication: BREAST CANCER
     Dosage: UNK, QW3 (ONCE IN 3 MONTHS)
     Route: 042
     Dates: start: 201503, end: 201602
  3. ZOMETA [Suspect]
     Active Substance: ZOLEDRONIC ACID
     Indication: BREAST CANCER
  4. ZOLEDRONIC ACID [Suspect]
     Active Substance: ZOLEDRONIC ACID
     Indication: METASTASES TO BONE
     Dosage: ONCE IN 4 WEEKS
     Route: 042
     Dates: start: 201409, end: 201503

REACTIONS (6)
  - Dysphagia [Unknown]
  - Pain [Unknown]
  - Swelling face [Unknown]
  - Osteonecrosis of jaw [Not Recovered/Not Resolved]
  - Subcutaneous haematoma [Unknown]
  - Mastication disorder [Unknown]

NARRATIVE: CASE EVENT DATE: 201602
